APPROVED DRUG PRODUCT: TEMAZEPAM
Active Ingredient: TEMAZEPAM
Strength: 30MG
Dosage Form/Route: CAPSULE;ORAL
Application: A071447 | Product #001
Applicant: WATSON LABORATORIES INC
Approved: May 21, 1993 | RLD: No | RS: No | Type: DISCN